FAERS Safety Report 4678449-1 (Version None)
Quarter: 2005Q2

REPORT INFORMATION
  Report Type: 
  Country: None (occurrence: None)
  Receive Date: 20050601
  Receipt Date: 20050301
  Transmission Date: 20051028
  Serious: Yes (Death, Hospitalization, Other)
  Sender: FDA-Public Use
  Company Number: CA-AMGEN-US107434

PATIENT
  Sex: Male
  Weight: 48 kg

DRUGS (8)
  1. ARANESP [Suspect]
     Indication: RENAL FAILURE CHRONIC
     Route: 058
     Dates: start: 20030909, end: 20050105
  2. ATENOLOL [Concomitant]
  3. NIFEDIPINE [Concomitant]
  4. FERROUS GLUCONATE [Concomitant]
  5. KAYEXALATE [Concomitant]
  6. CALCIUM CARBONATE [Concomitant]
  7. ADALAT [Concomitant]
  8. DIURETICS [Concomitant]

REACTIONS (10)
  - ABDOMINAL PAIN [None]
  - ANISOCYTOSIS [None]
  - ANTI-ERYTHROPOIETIN ANTIBODY POSITIVE [None]
  - APLASIA PURE RED CELL [None]
  - BONE MARROW DEPRESSION [None]
  - CHEST PAIN [None]
  - OESOPHAGEAL ULCER [None]
  - PARVOVIRUS B19 SEROLOGY POSITIVE [None]
  - THERAPEUTIC RESPONSE DECREASED [None]
  - WEIGHT DECREASED [None]
